FAERS Safety Report 9611689 (Version 1)
Quarter: 2013Q4

REPORT INFORMATION
  Report Type: Spontaneous
  Country: US (occurrence: US)
  Receive Date: 20131010
  Receipt Date: 20131010
  Transmission Date: 20140711
  Serious: Yes (Other)
  Sender: FDA-Public Use
  Company Number: US-PFIZER INC-2013290651

PATIENT
  Age: 6 Year
  Sex: Male

DRUGS (2)
  1. QUILLIVANT XR [Suspect]
     Indication: ATTENTION DEFICIT/HYPERACTIVITY DISORDER
     Dosage: UNK
     Dates: start: 20131005, end: 201310
  2. TENEX [Suspect]
     Dosage: UNK
     Dates: end: 201310

REACTIONS (2)
  - Tachycardia [Unknown]
  - Blood pressure increased [Unknown]
